FAERS Safety Report 8643972 (Version 2)
Quarter: 2013Q2

REPORT INFORMATION
  Report Type: Spontaneous
  Country: NO (occurrence: NO)
  Receive Date: 20120629
  Receipt Date: 20130514
  Transmission Date: 20140414
  Serious: Yes (Hospitalization)
  Sender: FDA-Public Use
  Company Number: NO-JNJFOC-20120610231

PATIENT
  Age: 19 Year
  Sex: Male

DRUGS (1)
  1. CONCERTA [Suspect]
     Indication: ATTENTION DEFICIT/HYPERACTIVITY DISORDER
     Dosage: 3.5 YEARS
     Route: 048
     Dates: start: 2006, end: 201009

REACTIONS (1)
  - Aplastic anaemia [Recovering/Resolving]
